FAERS Safety Report 5358605-X (Version None)
Quarter: 2007Q2

REPORT INFORMATION
  Report Type: 
  Country: None (occurrence: None)
  Receive Date: 20070615
  Receipt Date: 20070613
  Transmission Date: 20071010
  Serious: Yes (Hospitalization, Other)
  Sender: FDA-Public Use
  Company Number: HQWYE597113JUN07

PATIENT
  Age: 4 Year
  Sex: Male

DRUGS (1)
  1. OROKEN [Suspect]
     Dosage: UNKNOWN DOSE AND FREQUENCY
     Route: 048
     Dates: start: 20070501

REACTIONS (2)
  - ANGIOEDEMA [None]
  - MALAISE [None]
